FAERS Safety Report 17919923 (Version 1)
Quarter: 2020Q2

REPORT INFORMATION
  Report Type: Spontaneous
  Country: FR (occurrence: FR)
  Receive Date: 20200620
  Receipt Date: 20200620
  Transmission Date: 20200714
  Serious: Yes (Hospitalization, Other)
  Sender: FDA-Public Use
  Company Number: FR-AUROBINDO-AUR-APL-2020-029649

PATIENT
  Age: 78 Year
  Sex: Male

DRUGS (1)
  1. AMLODIPINE [Suspect]
     Active Substance: AMLODIPINE BESYLATE
     Indication: HYPERTENSION
     Dosage: 10 MILLIGRAM, ONCE A DAY
     Route: 065

REACTIONS (9)
  - Vitamin C deficiency [Recovering/Resolving]
  - Decreased appetite [Recovering/Resolving]
  - Abnormal loss of weight [Recovering/Resolving]
  - Gingival bleeding [Recovered/Resolved]
  - Hypovitaminosis [Recovering/Resolving]
  - Gingival hypertrophy [Recovering/Resolving]
  - Malnutrition [Recovering/Resolving]
  - Tooth disorder [Recovering/Resolving]
  - Dehydration [Recovering/Resolving]
